FAERS Safety Report 6981034-X (Version None)
Quarter: 2010Q3

REPORT INFORMATION
  Report Type: 
  Country: None (occurrence: None)
  Receive Date: 20100914
  Receipt Date: 20100903
  Transmission Date: 20110219
  Serious: Yes (Hospitalization)
  Sender: FDA-Public Use
  Company Number: GXKR2010US10030

PATIENT
  Age: 51 Year
  Sex: Male

DRUGS (12)
  1. CARISOPRODOL (NGX) [Suspect]
     Indication: BACK PAIN
     Dosage: 350 MG, BID
     Route: 048
  2. CARISOPRODOL (NGX) [Interacting]
     Dosage: UP TO 24 DF DAILY
     Route: 048
  3. ALPRAZOLAM (NGX) [Interacting]
     Indication: ANXIETY
     Dosage: 1 MG, TID
     Route: 048
  4. ALPRAZOLAM (NGX) [Interacting]
     Dosage: 0.5 MG, Q8H
     Route: 048
  5. HYDROCODONE BITARTRATE AND ACETAMINOPHEN [Concomitant]
     Indication: BACK PAIN
     Dosage: 1 DF, Q8H
     Route: 048
  6. AMLODIPINE [Concomitant]
     Dosage: 1 MG, TID
  7. ACETYLSALICYLIC ACID [Concomitant]
     Dosage: UNK
  8. ATORVASTATIN CALCIUM [Concomitant]
     Dosage: UNK
     Route: 048
  9. CYANOCOBALAMIN [Concomitant]
  10. HYDROXYZINE [Concomitant]
     Dosage: 25 MG, TID
     Route: 048
  11. LISINOPRIL [Concomitant]
  12. METOPROLOL TARTRATE [Concomitant]

REACTIONS (15)
  - AGITATION [None]
  - ANXIETY [None]
  - ATAXIA [None]
  - COGNITIVE DISORDER [None]
  - CONFUSIONAL STATE [None]
  - DISORIENTATION [None]
  - DISTRACTIBILITY [None]
  - DYSKINESIA [None]
  - HALLUCINATION, VISUAL [None]
  - HYPERTENSION [None]
  - MYOCLONUS [None]
  - PSYCHOTIC DISORDER [None]
  - TACHYCARDIA [None]
  - TREMOR [None]
  - WITHDRAWAL SYNDROME [None]
